FAERS Safety Report 6574748-7 (Version None)
Quarter: 2010Q1

REPORT INFORMATION
  Report Type: 
  Country: None (occurrence: None)
  Receive Date: 20100209
  Receipt Date: 20100128
  Transmission Date: 20100710
  Serious: Yes (Hospitalization)
  Sender: FDA-Public Use
  Company Number: PHHY2010DE05085

PATIENT
  Sex: Female
  Weight: 74 kg

DRUGS (12)
  1. ALISKIREN ALI+ [Suspect]
     Indication: HYPERTENSION
     Dosage: 150 MG/DAY
     Route: 048
     Dates: start: 20090128
  2. ACETYLSALICYLIC ACID [Suspect]
     Dosage: 100 MG/DAY
     Route: 048
     Dates: start: 20060830
  3. GLUCOBON [Suspect]
     Dosage: 850 MG/DAY
     Route: 048
     Dates: start: 20080317
  4. INSULIN [Concomitant]
     Indication: DIABETES MELLITUS
     Dosage: UNK
  5. ANTIHYPERTENSIVES [Concomitant]
  6. DILATREND [Concomitant]
     Dosage: 25 MG/DAY
     Route: 048
     Dates: start: 20091216
  7. AMLODIPINE [Concomitant]
     Dosage: 10 MG/DAY
     Route: 048
     Dates: start: 20091216
  8. DELIX PLUS [Concomitant]
     Dosage: 5 MG/DAY
     Dates: start: 20091216
  9. DELIX [Concomitant]
     Dosage: 5 MG/DAY
     Route: 048
  10. CYNT [Concomitant]
     Dosage: UNK
     Dates: start: 20091216
  11. TORSEMIDE [Concomitant]
     Dosage: 5 MG/DAY
     Route: 048
     Dates: start: 20091216
  12. SORTIS [Concomitant]
     Dosage: 20 MG/DAY
     Dates: start: 20091216

REACTIONS (2)
  - CHEST DISCOMFORT [None]
  - HYPERTENSION [None]
